FAERS Safety Report 9538765 (Version 2)
Quarter: 2014Q1

REPORT INFORMATION
  Report Type: Spontaneous
  Country: US (occurrence: None)
  Receive Date: 20130517
  Receipt Date: 20131120
  Transmission Date: 20141002
  Serious: No
  Sender: FDA-Public Use
  Company Number: 1000044187

PATIENT
  Age: 69 Year
  Sex: Female
  Weight: 90.72 kg

DRUGS (6)
  1. VIIBRYD (VILAZODONE HYDROCHLORIDE) (10 MILLIGRAM, TABLETS) [Suspect]
     Indication: DEPRESSION
     Route: 048
     Dates: start: 201302, end: 2013
  2. VIIBRYD (VILAZODONE HYDROCHLORIDE) (40 MILLIGRAM, TABLETS) [Suspect]
     Indication: DEPRESSION
     Route: 048
     Dates: start: 2013, end: 2013
  3. VIIBRYD (VILAZODONE HYDROCHLORIDE) (40 MILLIGRAM, TABLETS) [Suspect]
     Indication: DEPRESSION
     Route: 048
     Dates: start: 2013, end: 201306
  4. BENICAR (OLMESARTAN MEDOXOMIL) [Concomitant]
  5. CRESTOR (ROSUVASTATIN CALCIUM) [Concomitant]
  6. ASPIRIN (ACETYLSALICYLIC ACID) [Concomitant]

REACTIONS (5)
  - Psychomotor hyperactivity [None]
  - Somnolence [None]
  - Weight increased [None]
  - Fluid retention [None]
  - Drug effect increased [None]
